FAERS Safety Report 8072053-3 (Version None)
Quarter: 2012Q1

REPORT INFORMATION
  Report Type: 
  Country: None (occurrence: None)
  Receive Date: 20120124
  Receipt Date: 20120124
  Transmission Date: 20120608
  Serious: No
  Sender: FDA-Public Use
  Company Number: None

PATIENT
  Age: 66 Year
  Sex: Male
  Weight: 80.8 kg

DRUGS (2)
  1. LISINOPRIL [Suspect]
     Indication: DIABETES MELLITUS
     Dosage: 20 MG EVERY DAY PO
     Route: 048
     Dates: start: 20080401, end: 20110701
  2. LISINOPRIL [Suspect]
     Indication: HYPERTENSION
     Dosage: 20 MG EVERY DAY PO
     Route: 048
     Dates: start: 20080401, end: 20110701

REACTIONS (1)
  - HYPERKALAEMIA [None]
